FAERS Safety Report 10373877 (Version 1)
Quarter: 2014Q1

REPORT INFORMATION
  Report Type: Spontaneous
  Country: US (occurrence: None)
  Receive Date: 20140306
  Receipt Date: 20140306
  Transmission Date: 20141002
  Serious: Yes (Other)
  Sender: FDA-Public Use
  Company Number: 163-21880-13105985

PATIENT
  Age: 52 Year
  Sex: Male

DRUGS (5)
  1. REVLIMID [Suspect]
     Indication: PLASMA CELL MYELOMA
     Route: 048
     Dates: start: 20120910
  2. BABY ASPIRIN (ACETYLSALICYLIC ACID) [Concomitant]
  3. PREDNISONE (PREDNISONE) [Concomitant]
  4. LEVOTHROID (LEVOTHYROXINE SODIUM) [Concomitant]
  5. NEURONTIN (NEURONTIN) [Concomitant]

REACTIONS (2)
  - Dermatitis allergic [None]
  - Sinusitis [None]
